FAERS Safety Report 5823892-8 (Version None)
Quarter: 2008Q3

REPORT INFORMATION
  Report Type: 
  Country: None (occurrence: None)
  Receive Date: 20080724
  Receipt Date: 20080716
  Transmission Date: 20090109
  Serious: Yes (Other)
  Sender: FDA-Public Use
  Company Number: CHPA2008US11894

PATIENT
  Age: 38 Year
  Sex: Female

DRUGS (1)
  1. 4 WAY FAST ACTING NASAL SPRAY (NCH)(PHENYLEPHRINE) NASAL SPRAY [Suspect]
     Dosage: Q2H, NASAL
     Route: 045

REACTIONS (4)
  - DRUG DEPENDENCE [None]
  - DYSPNOEA [None]
  - INAPPROPRIATE SCHEDULE OF DRUG ADMINISTRATION [None]
  - INTENTIONAL DRUG MISUSE [None]
